FAERS Safety Report 23288302 (Version 3)
Quarter: 2024Q1

REPORT INFORMATION
  Report Type: Spontaneous
  Country: GB (occurrence: GB)
  Receive Date: 20231212
  Receipt Date: 20240318
  Transmission Date: 20240410
  Serious: Yes (Death, Hospitalization, Other)
  Sender: FDA-Public Use
  Company Number: None

PATIENT
  Age: 68 Year
  Sex: Female
  Weight: 108 kg

DRUGS (12)
  1. ENOXAPARIN SODIUM [Suspect]
     Active Substance: ENOXAPARIN SODIUM
     Indication: Thrombosis prophylaxis
     Dosage: 60 MG, QD
     Dates: start: 20230619
  2. CEFUROXIME [Concomitant]
     Active Substance: CEFUROXIME
     Indication: Prophylaxis
     Dosage: UNK
     Dates: start: 20230619, end: 20230619
  3. CODEINE PHOSPHATE [Concomitant]
     Active Substance: CODEINE PHOSPHATE
     Indication: Analgesic therapy
     Dosage: UNK
     Dates: start: 20230619, end: 20230622
  4. INDAPAMIDE [Concomitant]
     Active Substance: INDAPAMIDE
     Indication: Hypertension
     Dosage: UNK
  5. LACTULOSE [Concomitant]
     Active Substance: LACTULOSE
     Indication: Constipation prophylaxis
     Dosage: UNK
     Dates: start: 20230620, end: 20230621
  6. MOVICOL [Concomitant]
     Active Substance: POLYETHYLENE GLYCOL 3350\POTASSIUM CHLORIDE\SODIUM BICARBONATE\SODIUM CHLORIDE
     Indication: Constipation prophylaxis
     Dosage: UNK
     Dates: start: 20230620, end: 20230621
  7. NEFOPAM [Concomitant]
     Active Substance: NEFOPAM
     Indication: Analgesic therapy
     Dosage: UNK
     Dates: start: 20230620, end: 20230621
  8. OXYCONTIN [Concomitant]
     Active Substance: OXYCODONE HYDROCHLORIDE
     Indication: Analgesic therapy
     Dosage: UNK
     Dates: start: 20230619, end: 20230620
  9. OXYCONTIN [Concomitant]
     Active Substance: OXYCODONE HYDROCHLORIDE
     Indication: Analgesic therapy
  10. ACETAMINOPHEN [Concomitant]
     Active Substance: ACETAMINOPHEN
     Indication: Analgesic therapy
     Dosage: UNK
     Dates: start: 20230619, end: 20230622
  11. PERINDOPRIL [Concomitant]
     Active Substance: PERINDOPRIL
     Indication: Hypertension
     Dosage: UNK
  12. DABIGATRAN [Concomitant]
     Active Substance: DABIGATRAN
     Dosage: 220 MG
     Route: 048

REACTIONS (14)
  - Heparin-induced thrombocytopenia [Fatal]
  - Myocardial infarction [Fatal]
  - Coronary artery occlusion [Fatal]
  - Dyspnoea [Fatal]
  - Pulmonary oedema [Fatal]
  - Pulmonary embolism [Fatal]
  - Skin discolouration [Fatal]
  - Adrenal haemorrhage [Fatal]
  - Deep vein thrombosis [Fatal]
  - Superficial vein thrombosis [Fatal]
  - Pelvic venous thrombosis [Fatal]
  - Back pain [Fatal]
  - Left ventricular hypertrophy [Fatal]
  - Akinesia [Fatal]

NARRATIVE: CASE EVENT DATE: 20230630
